FAERS Safety Report 9402319 (Version 1)
Quarter: 2013Q3

REPORT INFORMATION
  Report Type: Spontaneous
  Country: US (occurrence: US)
  Receive Date: 20130716
  Receipt Date: 20130716
  Transmission Date: 20140515
  Serious: Yes (Hospitalization)
  Sender: FDA-Public Use
  Company Number: US-MERCK-1307USA005942

PATIENT
  Age: 52 Year
  Sex: Male

DRUGS (1)
  1. INVANZ [Suspect]
     Indication: PERITONITIS
     Route: 042

REACTIONS (1)
  - Hyperbilirubinaemia [Recovering/Resolving]
